FAERS Safety Report 24719900 (Version 1)
Quarter: 2024Q4

REPORT INFORMATION
  Report Type: Spontaneous
  Country: US (occurrence: US)
  Receive Date: 20241211
  Receipt Date: 20241211
  Transmission Date: 20250114
  Serious: Yes (Life-Threatening)
  Sender: MERCK
  Company Number: US-009507513-2412USA002043

PATIENT
  Sex: Female

DRUGS (1)
  1. KEYTRUDA [Suspect]
     Active Substance: PEMBROLIZUMAB
     Indication: Renal cell carcinoma
     Dosage: THE PATIENT HAD 11TH OF 14 INFUSIONS

REACTIONS (6)
  - Illness [Unknown]
  - Adverse event [Unknown]
  - General physical health deterioration [Unknown]
  - Dysstasia [Unknown]
  - Ill-defined disorder [Unknown]
  - Product prescribing issue [Unknown]
